FAERS Safety Report 12586775 (Version 1)
Quarter: 2016Q3

REPORT INFORMATION
  Report Type: Spontaneous
  Country: US (occurrence: None)
  Receive Date: 20160722
  Receipt Date: 20160722
  Transmission Date: 20161109
  Serious: Yes (Hospitalization)
  Sender: FDA-Public Use
  Company Number: None

PATIENT
  Age: 63 Year
  Sex: Male
  Weight: 104 kg

DRUGS (18)
  1. FISH OIL [Concomitant]
     Active Substance: FISH OIL
  2. INVEGA SUSTENNA [Concomitant]
     Active Substance: PALIPERIDONE PALMITATE
  3. RANITIDINE. [Concomitant]
     Active Substance: RANITIDINE
  4. CHOLECACIFEROL [Concomitant]
  5. FLUTICASONE [Concomitant]
     Active Substance: FLUTICASONE\FLUTICASONE PROPIONATE
  6. PRAVASTATIN. [Concomitant]
     Active Substance: PRAVASTATIN
  7. IPRATROPIUM BROMIDE. [Concomitant]
     Active Substance: IPRATROPIUM BROMIDE
  8. AMLODIPINE [Concomitant]
     Active Substance: AMLODIPINE BESYLATE
  9. ASPIRIN. [Concomitant]
     Active Substance: ASPIRIN
  10. METFORMIN [Concomitant]
     Active Substance: METFORMIN HYDROCHLORIDE
  11. CLOZAPINE. [Concomitant]
     Active Substance: CLOZAPINE
  12. IPRATROPIUM/ALBUTEROL SULFATE [Concomitant]
  13. FERROUS SULFATE. [Concomitant]
     Active Substance: FERROUS SULFATE
  14. PROTONIX [Concomitant]
     Active Substance: PANTOPRAZOLE SODIUM
  15. LISINOPRIL/HCTZ [Suspect]
     Active Substance: HYDROCHLOROTHIAZIDE\LISINOPRIL
     Indication: HYPERTENSION
     Dates: end: 20160403
  16. BUDESONIDE/FORMETEROL [Concomitant]
  17. COLACE [Concomitant]
     Active Substance: DOCUSATE SODIUM
  18. GLIPIZIDE. [Concomitant]
     Active Substance: GLIPIZIDE

REACTIONS (5)
  - Acute respiratory failure [None]
  - Pneumonia [None]
  - Respiratory tract oedema [None]
  - Angioedema [None]
  - Acute kidney injury [None]

NARRATIVE: CASE EVENT DATE: 20160329
